FAERS Safety Report 4834507-X (Version None)
Quarter: 2005Q4

REPORT INFORMATION
  Report Type: 
  Country: None (occurrence: None)
  Receive Date: 20051122
  Receipt Date: 20050114
  Transmission Date: 20060501
  Serious: No
  Sender: FDA-Public Use
  Company Number: US-BRISTOL-MYERS SQUIBB COMPANY-12826665

PATIENT
  Sex: Male

DRUGS (3)
  1. PRAVACHOL [Suspect]
  2. PLAVIX [Suspect]
     Route: 048
  3. TOPROL-XL [Concomitant]

REACTIONS (1)
  - WHITE BLOOD CELL COUNT DECREASED [None]
